FAERS Safety Report 8516866-X (Version None)
Quarter: 2012Q3

REPORT INFORMATION
  Report Type: 
  Country: None (occurrence: None)
  Receive Date: 20120706
  Receipt Date: 20120628
  Transmission Date: 20120928
  Serious: Yes (Other)
  Sender: FDA-Public Use
  Company Number: CL-430-2012

PATIENT
  Age: 72 Year
  Sex: Male
  Weight: 68 kg

DRUGS (4)
  1. VENLAFAXINE [Concomitant]
  2. ONDANSETRON [Suspect]
     Indication: VOMITING
     Dosage: 12MG (4+8MG)/ONE DAY
  3. ONDANSETRON [Suspect]
     Indication: NAUSEA
     Dosage: 12MG (4+8MG)/ONE DAY
  4. MIRTAZAPINE [Suspect]
     Indication: DEPRESSION
     Dosage: 45MG DAILY

REACTIONS (4)
  - DRUG INEFFECTIVE [None]
  - PROCEDURAL NAUSEA [None]
  - DRUG INTERACTION [None]
  - PROCEDURAL VOMITING [None]
